FAERS Safety Report 16750424 (Version 1)
Quarter: 2019Q3

REPORT INFORMATION
  Report Type: Spontaneous
  Country: AT (occurrence: AT)
  Receive Date: 20190828
  Receipt Date: 20190828
  Transmission Date: 20191005
  Serious: Yes (Other)
  Sender: FDA-Public Use
  Company Number: PHHY2019AT192887

PATIENT
  Sex: Female
  Weight: 54 kg

DRUGS (2)
  1. ILARIS [Suspect]
     Active Substance: CANAKINUMAB
     Indication: STILL^S DISEASE
     Dosage: UNK UNK, Q4W
     Route: 065
  2. ILARIS [Suspect]
     Active Substance: CANAKINUMAB
     Dosage: 150 MG, UNK (EVERY 6 WEEKS)
     Route: 058
     Dates: start: 20170928

REACTIONS (2)
  - Abscess [Recovered/Resolved]
  - Impaired healing [Not Recovered/Not Resolved]
